FAERS Safety Report 10550746 (Version 4)
Quarter: 2019Q2

REPORT INFORMATION
  Report Type: Report from Study
  Country: BR (occurrence: BR)
  Receive Date: 20141029
  Receipt Date: 20190610
  Transmission Date: 20190711
  Serious: Yes (Other)
  Sender: FDA-Public Use
  Company Number: BR-ROCHE-1481993

PATIENT
  Sex: Male
  Weight: 69 kg

DRUGS (10)
  1. RELVAR [Concomitant]
     Active Substance: FLUTICASONE FUROATE\VILANTEROL TRIFENATATE
     Indication: ASTHMA
     Dosage: UNK (SPORADIC USE OF PROLONGED BRONCHODILATOR AND INHALED CORTICOSTEROIDS)
     Route: 055
     Dates: start: 2016
  2. MOMETASONE FUROATE. [Concomitant]
     Active Substance: MOMETASONE FUROATE
     Indication: ASTHMA
     Route: 065
     Dates: start: 201401
  3. XOLAIR [Suspect]
     Active Substance: OMALIZUMAB
     Indication: ASTHMA
     Route: 058
     Dates: start: 2011
  4. XOLAIR [Suspect]
     Active Substance: OMALIZUMAB
     Route: 058
  5. XOLAIR [Suspect]
     Active Substance: OMALIZUMAB
     Route: 058
     Dates: start: 2013
  6. XOLAIR [Suspect]
     Active Substance: OMALIZUMAB
     Route: 058
  7. XOLAIR [Suspect]
     Active Substance: OMALIZUMAB
     Route: 058
  8. XOLAIR [Suspect]
     Active Substance: OMALIZUMAB
     Route: 058
     Dates: start: 201201
  9. XOLAIR [Suspect]
     Active Substance: OMALIZUMAB
     Route: 058
     Dates: start: 20190228
  10. PREDNICARBATE. [Concomitant]
     Active Substance: PREDNICARBATE
     Indication: ASTHMA
     Route: 065
     Dates: start: 201401

REACTIONS (7)
  - Drug ineffective [Unknown]
  - Asthma [Recovering/Resolving]
  - Dyspnoea [Not Recovered/Not Resolved]
  - General physical health deterioration [Not Recovered/Not Resolved]
  - Dyspnoea exertional [Unknown]
  - Cough [Recovering/Resolving]
  - Asthmatic crisis [Not Recovered/Not Resolved]

NARRATIVE: CASE EVENT DATE: 2016
